FAERS Safety Report 9296027 (Version 2)
Quarter: 2013Q2

REPORT INFORMATION
  Report Type: Spontaneous
  Country: GB (occurrence: GB)
  Receive Date: 20130517
  Receipt Date: 20130524
  Transmission Date: 20140414
  Serious: Yes (Other)
  Sender: FDA-Public Use
  Company Number: GB-INCYTE CORPORATION-2013IN000954

PATIENT
  Sex: 0

DRUGS (1)
  1. JAKAVI [Suspect]
     Dosage: NOT SPECIFIED
     Route: 065

REACTIONS (3)
  - Pulmonary hypertension [Unknown]
  - Drug interaction [Unknown]
  - Drug level increased [Unknown]
